FAERS Safety Report 21928121 (Version 2)
Quarter: 2023Q1

REPORT INFORMATION
  Report Type: Spontaneous
  Country: US (occurrence: US)
  Receive Date: 20230130
  Receipt Date: 20230331
  Transmission Date: 20230417
  Serious: No
  Sender: FDA-Public Use
  Company Number: US-Blueprint Medicines Corporation-SP-US-2023-000177

PATIENT
  Age: 78 Year
  Sex: Female

DRUGS (2)
  1. AYVAKIT [Suspect]
     Active Substance: AVAPRITINIB
     Indication: Systemic mastocytosis
     Route: 048
     Dates: start: 20211231
  2. AYVAKIT [Suspect]
     Active Substance: AVAPRITINIB
     Dosage: BY MOUTH ONCE DAILY, ON AN EMPTY STOMACH, AT LEAST 1 HOUR BEFORE OR 2 HOURS AFTER A ?MEAL
     Route: 048
     Dates: start: 20230120

REACTIONS (2)
  - Paraesthesia [Unknown]
  - Nerve compression [Unknown]

NARRATIVE: CASE EVENT DATE: 20230102
